FAERS Safety Report 16437521 (Version 2)
Quarter: 2020Q4

REPORT INFORMATION
  Report Type: Spontaneous
  Country: AU (occurrence: AU)
  Receive Date: 20190615
  Receipt Date: 20201230
  Transmission Date: 20210113
  Serious: Yes (Life-Threatening)
  Sender: FDA-Public Use
  Company Number: AU-ACCORD-133080

PATIENT
  Sex: Male

DRUGS (1)
  1. MONTELUKAST [Suspect]
     Active Substance: MONTELUKAST SODIUM
     Indication: ANGIOEDEMA

REACTIONS (1)
  - Drug ineffective [Unknown]
